FAERS Safety Report 12247646 (Version 2)
Quarter: 2016Q2

REPORT INFORMATION
  Report Type: Report from Study
  Country: GB (occurrence: GB)
  Receive Date: 20160408
  Receipt Date: 20160517
  Transmission Date: 20160815
  Serious: Yes (Death, Hospitalization, Other)
  Sender: FDA-Public Use
  Company Number: GB-ROCHE-1736710

PATIENT
  Age: 79 Year
  Sex: Female

DRUGS (17)
  1. RITUXIMAB [Suspect]
     Active Substance: RITUXIMAB
     Indication: RHEUMATOID ARTHRITIS
     Dosage: LAST DOSE OF RITUXIMAB PRIOR TO EVENT 21/JUL/2015
     Route: 042
     Dates: start: 20150707
  2. TAFLUPROST [Concomitant]
     Active Substance: TAFLUPROST
  3. BUTRANS [Concomitant]
     Active Substance: BUPRENORPHINE
  4. PREDNISOLONE. [Concomitant]
     Active Substance: PREDNISOLONE
  5. ALENDRONATE [Concomitant]
     Active Substance: ALENDRONATE SODIUM
  6. FOLIC ACID. [Concomitant]
     Active Substance: FOLIC ACID
  7. FERROUS FUMARATE [Concomitant]
     Active Substance: FERROUS FUMARATE
  8. BISOPROLOL [Concomitant]
     Active Substance: BISOPROLOL
  9. RAMIPRIL. [Concomitant]
     Active Substance: RAMIPRIL
  10. FUROSEMIDE. [Concomitant]
     Active Substance: FUROSEMIDE
  11. GABAPENTIN. [Concomitant]
     Active Substance: GABAPENTIN
  12. DIGOXIN. [Concomitant]
     Active Substance: DIGOXIN
  13. METHOTREXATE [Concomitant]
     Active Substance: METHOTREXATE
  14. RANITIDINE. [Concomitant]
     Active Substance: RANITIDINE
  15. ASCORBIC ACID. [Concomitant]
     Active Substance: ASCORBIC ACID
  16. APIXABAN [Concomitant]
     Active Substance: APIXABAN
  17. ADCAL - D3 [Concomitant]

REACTIONS (9)
  - Atrial fibrillation [Unknown]
  - Pulmonary fibrosis [Unknown]
  - Pulmonary oedema [Unknown]
  - Pneumonia [Fatal]
  - Bronchiectasis [Fatal]
  - Atrial fibrillation [Fatal]
  - Myocardial ischaemia [Fatal]
  - Lower respiratory tract infection [Unknown]
  - Pulmonary embolism [Unknown]

NARRATIVE: CASE EVENT DATE: 20160115
